FAERS Safety Report 8158086-7 (Version None)
Quarter: 2012Q1

REPORT INFORMATION
  Report Type: 
  Country: None (occurrence: None)
  Receive Date: 20120222
  Receipt Date: 20120221
  Transmission Date: 20120608
  Serious: Yes (Hospitalization)
  Sender: FDA-Public Use
  Company Number: DE-MERCK-1201DEU00037

PATIENT
  Age: 46 Year
  Sex: Female

DRUGS (4)
  1. METFORMIN [Concomitant]
     Indication: TYPE 2 DIABETES MELLITUS
     Route: 048
     Dates: start: 20071218, end: 20100222
  2. JANUVIA [Suspect]
     Indication: TYPE 2 DIABETES MELLITUS
     Route: 048
     Dates: start: 20080909, end: 20091222
  3. JANUVIA [Suspect]
     Indication: OBESITY
     Route: 048
     Dates: start: 20080909, end: 20091222
  4. REPAGLINIDE [Concomitant]
     Indication: TYPE 2 DIABETES MELLITUS
     Route: 048
     Dates: start: 20070323, end: 20100222

REACTIONS (1)
  - LICHEN PLANUS [None]
